FAERS Safety Report 9288353 (Version 1)
Quarter: 2013Q2

REPORT INFORMATION
  Report Type: Spontaneous
  Country: US (occurrence: US)
  Receive Date: 20130514
  Receipt Date: 20130514
  Transmission Date: 20140414
  Serious: No
  Sender: FDA-Public Use
  Company Number: US-OPTIMER PHARMACEUTICALS, INC.-20110020

PATIENT
  Sex: 0

DRUGS (4)
  1. DIFICID [Suspect]
     Indication: CLOSTRIDIAL INFECTION
     Dosage: 200 MG, BID
     Route: 048
     Dates: start: 20110902, end: 20110911
  2. LEVOTHYROXINE [Concomitant]
     Indication: HYPOTHYROIDISM
     Dosage: UNK
  3. VANCOMYCIN [Concomitant]
     Indication: CLOSTRIDIAL INFECTION
     Dosage: 150 MG, QID
     Route: 048
     Dates: start: 20110814, end: 20110819
  4. VANCOMYCIN [Concomitant]
     Dosage: 250 MG, QID
     Route: 048
     Dates: start: 20110820, end: 20110901

REACTIONS (2)
  - Diarrhoea [Not Recovered/Not Resolved]
  - Anxiety [None]
